FAERS Safety Report 11664511 (Version 1)
Quarter: 2015Q4

REPORT INFORMATION
  Report Type: Spontaneous
  Country: US (occurrence: None)
  Receive Date: 20151026
  Receipt Date: 20151026
  Transmission Date: 20160304
  Serious: No
  Sender: FDA-Public Use
  Company Number: None

PATIENT
  Age: 4 Year
  Sex: Female
  Weight: 20.41 kg

DRUGS (5)
  1. FLINSTONE MULTIVITAMIN [Concomitant]
  2. CHILDRENS ADVIL [Concomitant]
     Active Substance: IBUPROFEN
  3. CIPRODEX [Concomitant]
     Active Substance: CIPROFLOXACIN HYDROCHLORIDE\DEXAMETHASONE
  4. AMOX TR-KCLV 600 42.9/5 NORTHSTAR RX [Suspect]
     Active Substance: AMOXICILLIN\CLAVULANATE POTASSIUM
     Indication: LABYRINTHITIS
     Route: 048
     Dates: start: 20151015, end: 20151024
  5. AMOX TR-KCLV 600 42.9/5 NORTHSTAR RX [Suspect]
     Active Substance: AMOXICILLIN\CLAVULANATE POTASSIUM
     Indication: OTITIS EXTERNA
     Route: 048
     Dates: start: 20151015, end: 20151024

REACTIONS (3)
  - Abdominal pain upper [None]
  - Pain in extremity [None]
  - Ligament pain [None]

NARRATIVE: CASE EVENT DATE: 20151022
